FAERS Safety Report 18006068 (Version 1)
Quarter: 2020Q3

REPORT INFORMATION
  Report Type: Spontaneous
  Country: CN (occurrence: CN)
  Receive Date: 20200709
  Receipt Date: 20200709
  Transmission Date: 20201103
  Serious: Yes (Life-Threatening, Hospitalization)
  Sender: FDA-Public Use
  Company Number: CN-BAXTER-2020BAX013791

PATIENT
  Age: 51 Year
  Sex: Male

DRUGS (8)
  1. 5% GLUCOSE  INJECTION [Suspect]
     Active Substance: DEXTROSE
     Indication: MEDICATION DILUTION
     Dosage: RITUXIMAB INJECTION 60ML + 5% GS600ML
     Route: 041
     Dates: start: 20200602, end: 20200602
  2. RITUXIMAB. [Suspect]
     Active Substance: RITUXIMAB
     Indication: LYMPHOMA
     Dosage: RITUXIMAB INJECTION 60ML + 5% GS 600ML
     Route: 041
     Dates: start: 20200602, end: 20200602
  3. 0.9% SODIUM CHLORIDE INJECTION [Suspect]
     Active Substance: SODIUM CHLORIDE
     Indication: MEDICATION DILUTION
     Dosage: CYCLOPHOSPHAMIDE 1.1G + 0.9% NS 40ML
     Route: 042
     Dates: start: 20200603, end: 20200603
  4. 0.9% SODIUM CHLORIDE INJECTION [Suspect]
     Active Substance: SODIUM CHLORIDE
     Dosage: DOXORUBICIN HYDROCHLORIDE70 MG + 0.9% NS 40ML
     Route: 042
     Dates: start: 20200603, end: 20200603
  5. 0.9% SODIUM CHLORIDE INJECTION [Suspect]
     Active Substance: SODIUM CHLORIDE
     Dosage: VINCRISTINE SULFATE 2 MG + 0.9% NS 40 ML
     Route: 042
     Dates: start: 20200603, end: 20200603
  6. VINCRISTINE SULFATE. [Suspect]
     Active Substance: VINCRISTINE SULFATE
     Indication: LYMPHOMA
     Dosage: VINCRISTINE SULFATE FOR INJECTION 2 MG + 0.9% NS 40 ML
     Route: 042
     Dates: start: 20200603, end: 20200603
  7. DOXORUBICIN HYDROCHLORIDE. [Suspect]
     Active Substance: DOXORUBICIN HYDROCHLORIDE
     Indication: LYMPHOMA
     Dosage: DOXORUBICIN HYDROCHLORIDE 70 MG + 0.9% NS 40ML
     Route: 042
     Dates: start: 20200603, end: 20200603
  8. ENDOXAN [Suspect]
     Active Substance: CYCLOPHOSPHAMIDE
     Indication: LYMPHOMA
     Dosage: CYCLOPHOSPHAMIDE FOR INJECTION 1.1G + 0.9% NS 40ML
     Route: 042
     Dates: start: 20200603, end: 20200603

REACTIONS (1)
  - Myelosuppression [Recovering/Resolving]

NARRATIVE: CASE EVENT DATE: 20200612
